FAERS Safety Report 4539254-X (Version None)
Quarter: 2004Q4

REPORT INFORMATION
  Report Type: 
  Country: None (occurrence: None)
  Receive Date: 20041228
  Receipt Date: 20041217
  Transmission Date: 20050328
  Serious: Yes (Hospitalization)
  Sender: FDA-Public Use
  Company Number: US-JNJFOC-20041205422

PATIENT
  Age: 36 Year
  Sex: Male

DRUGS (1)
  1. REMICADE [Suspect]
     Indication: REITER'S SYNDROME
     Dosage: 4 INFUSIONS
     Route: 042

REACTIONS (1)
  - AUTOIMMUNE HEPATITIS [None]
